FAERS Safety Report 23969804 (Version 1)
Quarter: 2024Q2

REPORT INFORMATION
  Report Type: Spontaneous
  Country: US (occurrence: US)
  Receive Date: 20240613
  Receipt Date: 20240613
  Transmission Date: 20240715
  Serious: Yes (Other)
  Sender: FDA-Public Use
  Company Number: US-BRISTOL-MYERS SQUIBB COMPANY-2024-094812

PATIENT
  Age: 76 Year
  Sex: Male
  Weight: 78.4 kg

DRUGS (8)
  1. POMALIDOMIDE [Suspect]
     Active Substance: POMALIDOMIDE
     Indication: Plasma cell myeloma
     Route: 048
     Dates: start: 20170208, end: 20170501
  2. POMALIDOMIDE [Suspect]
     Active Substance: POMALIDOMIDE
     Route: 048
     Dates: start: 20170502, end: 20171017
  3. POMALIDOMIDE [Suspect]
     Active Substance: POMALIDOMIDE
     Route: 048
     Dates: start: 20171121, end: 20180919
  4. POMALIDOMIDE [Suspect]
     Active Substance: POMALIDOMIDE
     Route: 048
     Dates: start: 20200710, end: 20200821
  5. POMALIDOMIDE [Suspect]
     Active Substance: POMALIDOMIDE
     Route: 048
     Dates: start: 20200823, end: 20200908
  6. DECADRON [Concomitant]
     Active Substance: DEXAMETHASONE
     Indication: Plasma cell myeloma
     Dosage: LOW DOSE
     Route: 048
     Dates: start: 20200710, end: 20200925
  7. ISATUXIMAB-IRFC [Concomitant]
     Active Substance: ISATUXIMAB-IRFC
     Indication: Plasma cell myeloma
     Route: 042
     Dates: start: 20200710, end: 20200710
  8. ISATUXIMAB-IRFC [Concomitant]
     Active Substance: ISATUXIMAB-IRFC
     Dosage: FREQUENCY: CID8, EVERY 2 WEEKS
     Route: 042
     Dates: start: 20200716, end: 20200925

REACTIONS (2)
  - Neutropenia [Unknown]
  - Toxicity to various agents [Unknown]
